FAERS Safety Report 9160017 (Version 5)
Quarter: 2013Q2

REPORT INFORMATION
  Report Type: Report from Study
  Country: US (occurrence: US)
  Receive Date: 20130313
  Receipt Date: 20130531
  Transmission Date: 20140414
  Serious: Yes (Other)
  Sender: FDA-Public Use
  Company Number: US-VERTEX PHARMACEUTICALS INC.-2013-003374

PATIENT
  Age: 43 Year
  Sex: Male

DRUGS (10)
  1. VX-950 (TELAPREVIR) [Suspect]
     Indication: HEPATITIS C
     Dosage: UNK
     Route: 048
     Dates: start: 20130213, end: 20130220
  2. PEGASYS [Suspect]
     Indication: HEPATITIS C
     Dosage: 180 ?G, UNK
     Dates: start: 20130213, end: 20130220
  3. RIBAVIRIN [Suspect]
     Indication: HEPATITIS C
     Dosage: 200 MG, UNK
     Dates: start: 20130213, end: 20130220
  4. ALLEGRA [Concomitant]
  5. LANSOPRAZOLE [Concomitant]
  6. NADOLOL [Concomitant]
  7. MULTIVITAMIN [Concomitant]
  8. TRUVADA [Concomitant]
  9. ISENTRESS [Concomitant]
  10. FACTOR VIII [Concomitant]

REACTIONS (7)
  - Hepatic encephalopathy [Recovered/Resolved]
  - Amnesia [Recovered/Resolved]
  - Motor dysfunction [Recovered/Resolved]
  - Disorientation [Not Recovered/Not Resolved]
  - Confusional state [Unknown]
  - Feeling abnormal [Not Recovered/Not Resolved]
  - Off label use [Not Recovered/Not Resolved]
